FAERS Safety Report 4828477-8 (Version None)
Quarter: 2005Q4

REPORT INFORMATION
  Report Type: 
  Country: None (occurrence: None)
  Receive Date: 20051110
  Receipt Date: 20051028
  Transmission Date: 20060501
  Serious: Yes (Disabling, Other)
  Sender: FDA-Public Use
  Company Number: 2005134354

PATIENT
  Age: 64 Year
  Sex: Female
  Weight: 56 kg

DRUGS (1)
  1. XALATAN [Suspect]
     Indication: INTRAOCULAR PRESSURE INCREASED
     Dosage: 1 DROP (1 DROP, DAILY), OPHTHALMIC
     Route: 047
     Dates: start: 20030415, end: 20050908

REACTIONS (3)
  - DRUG INEFFECTIVE [None]
  - HYPERHIDROSIS [None]
  - WEIGHT INCREASED [None]
